FAERS Safety Report 5740603-5 (Version None)
Quarter: 2008Q2

REPORT INFORMATION
  Report Type: 
  Country: None (occurrence: None)
  Receive Date: 20080516
  Receipt Date: 20080514
  Transmission Date: 20081010
  Serious: Yes (Other)
  Sender: FDA-Public Use
  Company Number: A0727900A

PATIENT
  Age: 60 Year
  Sex: Male

DRUGS (5)
  1. COREG [Suspect]
     Indication: HYPERTENSION
     Dosage: 25MG TWICE PER DAY
     Route: 048
     Dates: start: 20051201
  2. COUMADIN [Concomitant]
  3. ASPIRIN [Concomitant]
  4. LORTAB [Concomitant]
  5. IBUPROFEN TABLETS [Concomitant]

REACTIONS (2)
  - GOUT [None]
  - SILENT MYOCARDIAL INFARCTION [None]
